FAERS Safety Report 4747885-7 (Version None)
Quarter: 2005Q3

REPORT INFORMATION
  Report Type: 
  Country: None (occurrence: None)
  Receive Date: 20050816
  Receipt Date: 20050801
  Transmission Date: 20060218
  Serious: Yes (Other)
  Sender: FDA-Public Use
  Company Number: 2005-0008581

PATIENT
  Sex: Female

DRUGS (6)
  1. VIREAD [Suspect]
     Indication: PROPHYLAXIS
     Dosage: 300 MG, 1 IN 1 D, ORAL
     Route: 048
     Dates: start: 20050629, end: 20050714
  2. VIREAD [Suspect]
     Indication: VERTICAL INFECTION TRANSMISSION
     Dosage: 300 MG, 1 IN 1 D, ORAL
     Route: 048
     Dates: start: 20050629, end: 20050714
  3. KALETRA [Suspect]
     Indication: PROPHYLAXIS
     Dosage: 3 DOSAGE FORMS, 2 IN 1 D, ORAL
     Route: 048
     Dates: start: 20050629, end: 20050714
  4. KALETRA [Suspect]
     Indication: VERTICAL INFECTION TRANSMISSION
     Dosage: 3 DOSAGE FORMS, 2 IN 1 D, ORAL
     Route: 048
     Dates: start: 20050629, end: 20050714
  5. ZIDOVUDINE [Suspect]
     Indication: PROPHYLAXIS
     Dosage: 250 MG, 2 IN 1 D, ORAL
     Route: 048
     Dates: start: 20050629, end: 20050714
  6. ZIDOVUDINE [Suspect]
     Indication: VERTICAL INFECTION TRANSMISSION
     Dosage: 250 MG, 2 IN 1 D, ORAL
     Route: 048
     Dates: start: 20050629, end: 20050714

REACTIONS (2)
  - DISEASE RECURRENCE [None]
  - HEPATITIS C [None]
